FAERS Safety Report 4662365-5 (Version None)
Quarter: 2005Q2

REPORT INFORMATION
  Report Type: 
  Country: None (occurrence: None)
  Receive Date: 20050516
  Receipt Date: 20050505
  Transmission Date: 20051028
  Serious: Yes (Death)
  Sender: FDA-Public Use
  Company Number: US-JNJFOC-20040704013

PATIENT
  Sex: Female

DRUGS (25)
  1. DURAGESIC-100 [Suspect]
     Route: 062
  2. DURAGESIC-100 [Suspect]
     Indication: PAIN
     Route: 062
  3. SILVADENE [Concomitant]
     Route: 061
  4. VALIUM [Concomitant]
     Route: 049
  5. NEURONTIN [Concomitant]
     Route: 049
  6. DEPAKOTE [Concomitant]
     Route: 049
  7. SEROQUEL [Concomitant]
     Route: 049
  8. THIAMINE [Concomitant]
     Route: 049
  9. RISPERDAL [Concomitant]
     Indication: AGITATION
     Dosage: EVERY 4-6 HRS AS NEEDED.
     Route: 049
  10. MULTI-VITAMINS [Concomitant]
     Route: 049
  11. MULTI-VITAMINS [Concomitant]
     Route: 049
  12. MULTI-VITAMINS [Concomitant]
     Route: 049
  13. MULTI-VITAMINS [Concomitant]
     Route: 049
  14. MULTI-VITAMINS [Concomitant]
     Route: 049
  15. MULTI-VITAMINS [Concomitant]
     Route: 049
  16. MULTI-VITAMINS [Concomitant]
     Route: 049
  17. MULTI-VITAMINS [Concomitant]
     Route: 049
  18. VITAMIN E [Concomitant]
     Route: 049
  19. REMERON [Concomitant]
     Route: 049
  20. NICODERM [Concomitant]
     Route: 062
  21. PERCOCET [Concomitant]
     Route: 049
  22. PERCOCET [Concomitant]
     Indication: PAIN
     Dosage: 5 MG ONE TO TWO EVERY 4 HRS
     Route: 049
  23. LORTAB [Concomitant]
     Route: 049
  24. LORTAB [Concomitant]
     Indication: PAIN
     Dosage: ONE TO TWO TABS EVERY 4-6 HRS
     Route: 049
  25. MORPHINE [Concomitant]
     Indication: PAIN
     Dosage: 2-4 MG INTRAVENOUS EVERY 3 HRS AS NEEDED.
     Route: 042

REACTIONS (13)
  - ACUTE RESPIRATORY DISTRESS SYNDROME [None]
  - AGITATION [None]
  - ANXIETY [None]
  - CARDIO-RESPIRATORY ARREST [None]
  - COMA [None]
  - CRYING [None]
  - DEPRESSED LEVEL OF CONSCIOUSNESS [None]
  - DISCOMFORT [None]
  - DRUG TOXICITY [None]
  - INSOMNIA [None]
  - PAIN [None]
  - PNEUMONIA [None]
  - TEARFULNESS [None]
